FAERS Safety Report 6120891-6 (Version None)
Quarter: 2009Q1

REPORT INFORMATION
  Report Type: 
  Country: None (occurrence: None)
  Receive Date: 20090317
  Receipt Date: 20090216
  Transmission Date: 20090719
  Serious: No
  Sender: FDA-Public Use
  Company Number: US-BAYER-200813729BCC

PATIENT
  Age: 80 Year
  Sex: Male
  Weight: 85 kg

DRUGS (2)
  1. ALEVE [Suspect]
     Indication: BACK PAIN
     Dosage: TOTAL DAILY DOSE: 440 MG  UNIT DOSE: 220 MG
     Route: 048
     Dates: start: 20080909
  2. METFORMIN HCL [Concomitant]
     Route: 048

REACTIONS (2)
  - FOREIGN BODY TRAUMA [None]
  - GASTROOESOPHAGEAL REFLUX DISEASE [None]
